FAERS Safety Report 16152098 (Version 3)
Quarter: 2019Q2

REPORT INFORMATION
  Report Type: Spontaneous
  Country: US (occurrence: US)
  Receive Date: 20190403
  Receipt Date: 20190501
  Transmission Date: 20190711
  Serious: Yes (Other)
  Sender: FDA-Public Use
  Company Number: US-PFIZER INC-2017344908

PATIENT
  Age: 1 Year
  Sex: Male
  Weight: 9.53 kg

DRUGS (2)
  1. GENOTROPIN [Suspect]
     Active Substance: SOMATROPIN
     Indication: GROWTH HORMONE DEFICIENCY
     Dosage: 0.4 (NO UNIT PROVIDED), DAILY
  2. GENOTROPIN [Suspect]
     Active Substance: SOMATROPIN
     Dosage: 0.6 MG, DAILY
     Dates: start: 20170405

REACTIONS (8)
  - Anaemia [Unknown]
  - End stage renal disease [Unknown]
  - Device breakage [Unknown]
  - Chronic kidney disease-mineral and bone disorder [Unknown]
  - Product dose omission [Unknown]
  - Selective eating disorder [Unknown]
  - Urinary tract obstruction [Unknown]
  - Developmental delay [Unknown]
